FAERS Safety Report 7243268-9 (Version None)
Quarter: 2011Q1

REPORT INFORMATION
  Report Type: 
  Country: None (occurrence: None)
  Receive Date: 20110125
  Receipt Date: 20101213
  Transmission Date: 20110831
  Serious: Yes (Death)
  Sender: FDA-Public Use
  Company Number: AU-ROCHE-753980

PATIENT
  Sex: Female

DRUGS (4)
  1. DIAZEPAM [Suspect]
     Route: 048
  2. FLUPENTHIXOL [Suspect]
     Dosage: FREQUENCY: FORTNIGHTLY.DRUG REPORTED: FLUPENTHIXOL DECANOATE
     Route: 030
  3. CITALOPRAM HYDROBROMIDE [Suspect]
     Dosage: FREQUENCY: DAILY
     Route: 048
  4. QUETIAPINE [Suspect]
     Dosage: FORM: PILL.FREQUENCY: DAILY.
     Route: 048

REACTIONS (2)
  - MYOCARDIAL ISCHAEMIA [None]
  - TOXICITY TO VARIOUS AGENTS [None]
